FAERS Safety Report 18429027 (Version 1)
Quarter: 2020Q4

REPORT INFORMATION
  Report Type: Spontaneous
  Country: US (occurrence: US)
  Receive Date: 20201026
  Receipt Date: 20201026
  Transmission Date: 20210114
  Serious: Yes (Death, Other)
  Sender: FDA-Public Use
  Company Number: US-AMGEN-USASP2020170435

PATIENT

DRUGS (1)
  1. FILGRASTIM [Suspect]
     Active Substance: FILGRASTIM
     Indication: HAEMATOPOIETIC STEM CELL MOBILISATION
     Dosage: UNK
     Route: 065

REACTIONS (25)
  - Subclavian vein thrombosis [Unknown]
  - Oedema [Unknown]
  - Nephropathy toxic [Unknown]
  - Mucosal inflammation [Unknown]
  - Vomiting [Unknown]
  - Post procedural sepsis [Fatal]
  - Jugular vein thrombosis [Unknown]
  - Gout [Unknown]
  - Pulmonary artery thrombosis [Fatal]
  - Liver injury [Unknown]
  - Abdominal pain [Unknown]
  - Embolism [Fatal]
  - Gastrointestinal amyloidosis [Fatal]
  - Weight increased [Unknown]
  - Diarrhoea [Unknown]
  - Death [Fatal]
  - Sepsis [Fatal]
  - Multiple organ dysfunction syndrome [Fatal]
  - Pulmonary oedema [Unknown]
  - Plasma cell disorder [Unknown]
  - Oxygen saturation decreased [Unknown]
  - Nausea [Unknown]
  - Oedema peripheral [Unknown]
  - Cardiac arrest [Fatal]
  - Hepatotoxicity [Unknown]
